FAERS Safety Report 6168721-0 (Version None)
Quarter: 2009Q2

REPORT INFORMATION
  Report Type: 
  Country: None (occurrence: None)
  Receive Date: 20090424
  Receipt Date: 20090424
  Transmission Date: 20091009
  Serious: Yes (Life-Threatening, Hospitalization)
  Sender: FDA-Public Use
  Company Number: None

PATIENT
  Age: 82 Year
  Sex: Male
  Weight: 100 kg

DRUGS (2)
  1. SIMVASTATIN [Suspect]
     Indication: HYPERTENSION
     Dosage: 80 MG EVERY DAY PO
     Route: 048
     Dates: start: 20041020, end: 20090326
  2. CLARITHROMYCIN [Suspect]
     Indication: HELICOBACTER INFECTION
     Dosage: 500 MG BID PO
     Route: 048
     Dates: start: 20090220, end: 20090306

REACTIONS (6)
  - DIABETES MELLITUS [None]
  - DIABETIC END STAGE RENAL DISEASE [None]
  - DIALYSIS [None]
  - MYOPATHY [None]
  - MYOSITIS [None]
  - RHABDOMYOLYSIS [None]
